FAERS Safety Report 16208209 (Version 2)
Quarter: 2019Q2

REPORT INFORMATION
  Report Type: Spontaneous
  Country: US (occurrence: US)
  Receive Date: 20190417
  Receipt Date: 20190510
  Transmission Date: 20190711
  Serious: Yes (Other)
  Sender: FDA-Public Use
  Company Number: US-MYLANLABS-2019M1033712

PATIENT
  Sex: Female
  Weight: 82 kg

DRUGS (5)
  1. CLONIDINE TRANSDERMAL SYSTEM [Suspect]
     Active Substance: CLONIDINE
     Indication: HYPERTENSION
     Dosage: UNK
     Route: 062
  2. CLONIDINE TRANSDERMAL SYSTEM [Suspect]
     Active Substance: CLONIDINE
     Dosage: DOSE INCREASED
     Route: 062
  3. CARVEDILOL AUROBINDO [Suspect]
     Active Substance: CARVEDILOL
     Indication: HYPERTENSION
     Dosage: 1 DOSAGE FORM, QD
     Route: 048
  4. LOSARTAN. [Suspect]
     Active Substance: LOSARTAN
     Indication: HYPERTENSION
     Dosage: 100 MILLIGRAM, QD
     Route: 048
  5. CARVEDILOL AUROBINDO [Suspect]
     Active Substance: CARVEDILOL
     Dosage: 2 DOSAGE FORM, QD
     Route: 048

REACTIONS (1)
  - Intracranial aneurysm [Recovered/Resolved]
